FAERS Safety Report 7905829-0 (Version None)
Quarter: 2011Q4

REPORT INFORMATION
  Report Type: 
  Country: None (occurrence: None)
  Receive Date: 20111108
  Receipt Date: 20111024
  Transmission Date: 20120403
  Serious: Yes (Hospitalization)
  Sender: FDA-Public Use
  Company Number: 2011MA015512

PATIENT
  Age: 52 Year
  Sex: Male

DRUGS (8)
  1. PANTOPRAZOLE [Concomitant]
  2. FLUTICASONE PROPIONATE/SALMETEROL [Concomitant]
  3. LOVASTATIN [Concomitant]
  4. ZOLPIDEM [Concomitant]
  5. HYDROXYCHLOROQUINE SULFATE [Concomitant]
  6. PREDNISONE [Concomitant]
  7. ALBUTEROL SULFATE [Suspect]
     Dosage: PRN
  8. IBANDRONATE SODIUM [Concomitant]

REACTIONS (6)
  - DYSPNOEA [None]
  - VOMITING [None]
  - HILAR LYMPHADENOPATHY [None]
  - RENAL FAILURE ACUTE [None]
  - NAUSEA [None]
  - CHILLS [None]
